FAERS Safety Report 8122404-6 (Version None)
Quarter: 2012Q1

REPORT INFORMATION
  Report Type: 
  Country: None (occurrence: None)
  Receive Date: 20120208
  Receipt Date: 20111222
  Transmission Date: 20120608
  Serious: Yes (Other)
  Sender: FDA-Public Use
  Company Number: JP-GLAXOSMITHKLINE-B0771570A

PATIENT
  Age: 29 Year
  Sex: Female

DRUGS (5)
  1. LEVOTOMIN [Suspect]
     Indication: PRODUCT USED FOR UNKNOWN INDICATION
     Route: 065
  2. SEROQUEL [Suspect]
     Indication: PRODUCT USED FOR UNKNOWN INDICATION
     Route: 048
  3. RISPERDAL [Suspect]
     Indication: PRODUCT USED FOR UNKNOWN INDICATION
     Route: 065
  4. AKINETON [Concomitant]
     Indication: PRODUCT USED FOR UNKNOWN INDICATION
     Route: 065
  5. PAXIL [Suspect]
     Indication: SOCIAL FEAR
     Dosage: 5MG PER DAY
     Route: 048
     Dates: start: 20111207, end: 20111221

REACTIONS (4)
  - THIRST [None]
  - INSOMNIA [None]
  - AKATHISIA [None]
  - HYPOMANIA [None]
